FAERS Safety Report 19010882 (Version 2)
Quarter: 2021Q2

REPORT INFORMATION
  Report Type: Spontaneous
  Country: PL (occurrence: PL)
  Receive Date: 20210316
  Receipt Date: 20210607
  Transmission Date: 20210717
  Serious: Yes (Hospitalization, Other)
  Sender: FDA-Public Use
  Company Number: PL-ACCORD-219712

PATIENT
  Age: 54 Year
  Sex: Female

DRUGS (7)
  1. RISPERIDONE. [Interacting]
     Active Substance: RISPERIDONE
     Indication: SCHIZOPHRENIA
     Dosage: 4 MG/24 H
  2. NEBIVOLOL. [Interacting]
     Active Substance: NEBIVOLOL
     Indication: HYPERTENSION
     Dosage: 5 MG, PER DAY
  3. GINKGO BILOBA/GINKGO BILOBA EXTRACT/GINKGO BILOBA LEAF EXTRACT [Interacting]
     Active Substance: GINKGO BILOBA LEAF EXTRACT
     Indication: SOMNOLENCE
     Dosage: 240 MG, PER DAY COATED TABLET
  4. AMLODIPINE [Suspect]
     Active Substance: AMLODIPINE BESYLATE
     Indication: HYPERTENSION
     Dosage: 10 MG, PER DAY
  5. PERINDOPRIL [Interacting]
     Active Substance: PERINDOPRIL
     Indication: HYPOTENSION
  6. CELECOXIB. [Interacting]
     Active Substance: CELECOXIB
     Indication: BACK PAIN
     Dosage: 200 MILLIGRAM, QD
  7. ATORVASTATIN/ATORVASTATIN CALCIUM [Interacting]
     Active Substance: ATORVASTATIN CALCIUM
     Indication: DYSLIPIDAEMIA
     Dosage: 40 MG, PER DAY

REACTIONS (3)
  - Drug interaction [Unknown]
  - Swollen tongue [Recovered/Resolved]
  - Angioedema [Unknown]
